FAERS Safety Report 7632483-8 (Version None)
Quarter: 2011Q3

REPORT INFORMATION
  Report Type: 
  Country: None (occurrence: None)
  Receive Date: 20110725
  Receipt Date: 20100923
  Transmission Date: 20111222
  Serious: Yes (Other)
  Sender: FDA-Public Use
  Company Number: US-BRISTOL-MYERS SQUIBB COMPANY-15294093

PATIENT
  Sex: Male

DRUGS (3)
  1. QUINIDINE HCL [Concomitant]
  2. COUMADIN [Suspect]
     Dates: start: 19890101, end: 19890101
  3. DIGOXIN [Concomitant]

REACTIONS (1)
  - DRUG HYPERSENSITIVITY [None]
